FAERS Safety Report 18470383 (Version 2)
Quarter: 2020Q4

REPORT INFORMATION
  Report Type: Spontaneous
  Country: US (occurrence: US)
  Receive Date: 20201106
  Receipt Date: 20201126
  Transmission Date: 20210114
  Serious: Yes (Death, Hospitalization, Other)
  Sender: FDA-Public Use
  Company Number: US-ACCORD-207093

PATIENT
  Age: 66 Year
  Sex: Male

DRUGS (9)
  1. TACROLIMUS. [Interacting]
     Active Substance: TACROLIMUS
     Indication: IMMUNOSUPPRESSION
     Dates: start: 201808
  2. ANTITHYMOCYTE IMMUNOGLOBULIN [Interacting]
     Active Substance: THYMOCYTE IMMUNE GLOBULIN NOS
     Indication: IMMUNOSUPPRESSION
     Dates: start: 201808
  3. MYCOPHENOLIC ACID. [Suspect]
     Active Substance: MYCOPHENOLIC ACID
     Indication: IMMUNOSUPPRESSION
     Dates: start: 201808
  4. IMMUNOGLOBULIN [IMMUNOGLOBULINS NOS] [Interacting]
     Active Substance: IMMUNE GLOBULIN NOS
     Indication: TRANSPLANT REJECTION
     Route: 042
     Dates: start: 201809
  5. VALGANCICLOVIR/VALGANCICLOVIR HYDROCHLORIDE [Interacting]
     Active Substance: VALGANCICLOVIR
     Indication: INFECTION PROPHYLAXIS
     Dates: start: 201808
  6. NYSTATIN/NYSTATIN/LIPOSOME [Interacting]
     Active Substance: NYSTATIN
     Indication: INFECTION PROPHYLAXIS
     Dosage: SWISH AND SWALLOW
     Dates: start: 201808
  7. PREDNISONE. [Interacting]
     Active Substance: PREDNISONE
     Indication: TRANSPLANT REJECTION
     Dosage: TAPER
     Route: 048
     Dates: start: 201809
  8. SULFAMETHOXAZOLE/TRIMETHOPRIM [Interacting]
     Active Substance: SULFAMETHOXAZOLE\TRIMETHOPRIM
     Indication: INFECTION PROPHYLAXIS
     Dates: start: 201808
  9. METHYLPREDNISOLONE. [Interacting]
     Active Substance: METHYLPREDNISOLONE
     Indication: TRANSPLANT REJECTION
     Dates: start: 201809

REACTIONS (11)
  - Inflammation [Recovering/Resolving]
  - Chronic papillomatous dermatitis [Recovering/Resolving]
  - Drug interaction [Unknown]
  - Staphylococcal infection [Recovering/Resolving]
  - Trichophytosis [Recovered/Resolved]
  - Disseminated trichosporonosis [Recovering/Resolving]
  - Pulmonary mass [Recovering/Resolving]
  - Dermatophytosis [Recovering/Resolving]
  - Postoperative wound infection [Recovered/Resolved]
  - Abscess [Recovering/Resolving]
  - Neutrophilic dermatosis [Recovering/Resolving]

NARRATIVE: CASE EVENT DATE: 201809
